FAERS Safety Report 9525810 (Version 2)
Quarter: 2014Q1

REPORT INFORMATION
  Report Type: Spontaneous
  Country: DE (occurrence: DE)
  Receive Date: 20130916
  Receipt Date: 20140310
  Transmission Date: 20141002
  Serious: Yes (Other)
  Sender: FDA-Public Use
  Company Number: DE-UCBSA-097209

PATIENT
  Age: 78 Year
  Sex: Male
  Weight: 68 kg

DRUGS (4)
  1. VIMPAT [Suspect]
     Indication: STATUS EPILEPTICUS
     Route: 042
     Dates: start: 20130701, end: 20130703
  2. KEPPRA [Suspect]
     Indication: EPILEPSY
     Route: 042
     Dates: start: 20130626
  3. AXURA [Concomitant]
     Indication: DEMENTIA
     Route: 048
     Dates: start: 2012
  4. GALNORA [Concomitant]
     Indication: DEMENTIA
     Route: 048
     Dates: start: 2012

REACTIONS (4)
  - Status epilepticus [Unknown]
  - Sinus bradycardia [Recovered/Resolved]
  - Circulatory collapse [Unknown]
  - Grand mal convulsion [Unknown]
